FAERS Safety Report 8836858 (Version 1)
Quarter: 2012Q4

REPORT INFORMATION
  Report Type: 
  Country: US (occurrence: US)
  Receive Date: 20121012
  Receipt Date: 20121012
  Transmission Date: 20130627
  Serious: No
  Sender: FDA-Public Use
  Company Number: US-009507513-1210USA001816

PATIENT
  Age: 12 Year
  Sex: Female

DRUGS (4)
  1. SINGULAIR [Suspect]
     Indication: HYPERSENSITIVITY
     Dosage: 5 mg, qd
     Route: 048
     Dates: start: 201012
  2. SINGULAIR [Suspect]
     Indication: ASTHMA
  3. NASONEX [Concomitant]
     Dosage: once a day
  4. PROAIR (ALBUTEROL SULFATE) [Concomitant]
     Dosage: as needed

REACTIONS (1)
  - Suicidal ideation [Unknown]
